FAERS Safety Report 15917309 (Version 1)
Quarter: 2019Q1

REPORT INFORMATION
  Report Type: Spontaneous
  Country: CN (occurrence: CN)
  Receive Date: 20190205
  Receipt Date: 20190205
  Transmission Date: 20190417
  Serious: Yes (Other)
  Sender: FDA-Public Use
  Company Number: CN-ROCHE-2256408

PATIENT
  Age: 40 Year
  Sex: Male
  Weight: 65 kg

DRUGS (6)
  1. GLUCOSE [Concomitant]
     Active Substance: DEXTROSE
     Route: 041
     Dates: start: 20180527, end: 20180527
  2. AVASTIN [Suspect]
     Active Substance: BEVACIZUMAB
     Indication: METASTASES TO LIVER
  3. AVASTIN [Suspect]
     Active Substance: BEVACIZUMAB
     Indication: NASOPHARYNGEAL CANCER
     Route: 041
     Dates: start: 20180527, end: 20180527
  4. LIPOSOME ENTRAPPED PACLITAXEL [Suspect]
     Active Substance: PACLITAXEL
     Indication: METASTASES TO LIVER
  5. LIPOSOME ENTRAPPED PACLITAXEL [Suspect]
     Active Substance: PACLITAXEL
     Indication: NASOPHARYNGEAL CANCER
     Route: 041
     Dates: start: 20180527, end: 20180527
  6. SODIUM CHLORIDE. [Concomitant]
     Active Substance: SODIUM CHLORIDE
     Route: 041
     Dates: start: 20180527, end: 20180527

REACTIONS (2)
  - White blood cell count decreased [Recovering/Resolving]
  - Pyrexia [Recovering/Resolving]

NARRATIVE: CASE EVENT DATE: 20180529
